FAERS Safety Report 7708802-0 (Version None)
Quarter: 2011Q3

REPORT INFORMATION
  Report Type: 
  Country: None (occurrence: None)
  Receive Date: 20110819
  Receipt Date: 20110803
  Transmission Date: 20111222
  Serious: Yes (Hospitalization, Other)
  Sender: FDA-Public Use
  Company Number: 2009S1004749

PATIENT
  Age: 55 Year
  Sex: Female
  Weight: 68 kg

DRUGS (3)
  1. PHOSPHOSODA FLAVOR NOT SPECIFIED [Suspect]
     Indication: COLONOSCOPY
     Dosage: 90 ML; TOTAL; PO
     Route: 048
     Dates: start: 20060419, end: 20060420
  2. ASPIRIN [Concomitant]
  3. AVAPRO [Concomitant]

REACTIONS (11)
  - ASTHENIA [None]
  - RENAL FAILURE [None]
  - DEHYDRATION [None]
  - FLUID OVERLOAD [None]
  - DYSTROPHIC CALCIFICATION [None]
  - RENAL TUBULAR NECROSIS [None]
  - NEPHROCALCINOSIS [None]
  - ANAEMIA [None]
  - DIARRHOEA [None]
  - NAUSEA [None]
  - HYPOPHAGIA [None]
